FAERS Safety Report 7705595-8 (Version None)
Quarter: 2011Q3

REPORT INFORMATION
  Report Type: 
  Country: None (occurrence: None)
  Receive Date: 20110824
  Receipt Date: 20101203
  Transmission Date: 20111222
  Serious: No
  Sender: FDA-Public Use
  Company Number: US-BAYER-2010-005418

PATIENT
  Age: 45 Year
  Sex: Female

DRUGS (1)
  1. MIRENA [Suspect]
     Indication: CONTRACEPTION
     Dosage: UNK
     Route: 015
     Dates: start: 20101005, end: 20101115

REACTIONS (7)
  - BACK PAIN [None]
  - HYPOAESTHESIA [None]
  - CHANGE OF BOWEL HABIT [None]
  - ABDOMINAL DISTENSION [None]
  - MIGRAINE [None]
  - ALOPECIA [None]
  - WEIGHT INCREASED [None]
